FAERS Safety Report 4550788-4 (Version None)
Quarter: 2004Q4

REPORT INFORMATION
  Report Type: 
  Country: None (occurrence: None)
  Receive Date: 20041217
  Receipt Date: 20040930
  Transmission Date: 20050328
  Serious: No
  Sender: FDA-Public Use
  Company Number: 2004-BP-09046BP

PATIENT
  Sex: Female

DRUGS (9)
  1. SPIRIVA [Suspect]
     Indication: CHRONIC OBSTRUCTIVE AIRWAYS DISEASE
     Dosage: 18 MCG (18 MCG), IH
     Route: 055
     Dates: start: 20040701
  2. THEO-DUR [Concomitant]
  3. ALBUTEROL [Concomitant]
  4. PULMICORT [Concomitant]
  5. FOSAMAX [Concomitant]
  6. DIOVAN [Concomitant]
  7. OXYGEN (OXYGEN) [Concomitant]
  8. CLOBETOROL [Concomitant]
  9. DOVONEX (CALCIPOTRIOL) [Concomitant]

REACTIONS (2)
  - ACCIDENTAL EXPOSURE [None]
  - HOARSENESS [None]
